FAERS Safety Report 5513126-6 (Version None)
Quarter: 2007Q4

REPORT INFORMATION
  Report Type: 
  Country: None (occurrence: None)
  Receive Date: 20071112
  Receipt Date: 20071031
  Transmission Date: 20080405
  Serious: Yes (Disabling)
  Sender: FDA-Public Use
  Company Number: GB-JNJFOC-20071100554

PATIENT
  Age: 53 Year
  Sex: Female
  Weight: 66.65 kg

DRUGS (4)
  1. TRAMACET [Suspect]
     Indication: PAIN
     Route: 048
  2. LANSOPRAZOLE [Concomitant]
     Route: 048
  3. MEBEVERINE HYDROCHLORIDE [Concomitant]
     Route: 065
  4. NYTOL HERBAL UNWIND [Concomitant]
     Indication: INSOMNIA
     Route: 065

REACTIONS (3)
  - HEART RATE DECREASED [None]
  - PALPITATIONS [None]
  - SYNCOPE [None]
